FAERS Safety Report 6731019-3 (Version None)
Quarter: 2010Q2

REPORT INFORMATION
  Report Type: 
  Country: None (occurrence: None)
  Receive Date: 20100518
  Receipt Date: 20100507
  Transmission Date: 20101027
  Serious: Yes (Hospitalization)
  Sender: FDA-Public Use
  Company Number: US-JNJFOC-20100503871

PATIENT
  Age: 10 Week
  Weight: 5.9 kg

DRUGS (2)
  1. CONCENTRATED TYLENOL INFANT DROPS [Suspect]
     Indication: PYREXIA
  2. CONCENTRATED TYLENOL INFANT DROPS [Suspect]
     Indication: IMMUNISATION

REACTIONS (2)
  - HOSPITALISATION [None]
  - PRODUCT QUALITY ISSUE [None]
